FAERS Safety Report 5745530-5 (Version None)
Quarter: 2008Q2

REPORT INFORMATION
  Report Type: 
  Country: None (occurrence: None)
  Receive Date: 20080519
  Receipt Date: 20080407
  Transmission Date: 20081010
  Serious: No
  Sender: FDA-Public Use
  Company Number: TPA2008A00456

PATIENT
  Age: 49 Year
  Sex: Female

DRUGS (3)
  1. ROZEREM [Suspect]
     Indication: INSOMNIA
     Dosage: 8 MG, QHS, PER ORAL
     Route: 048
     Dates: start: 20080403, end: 20080406
  2. BLOOD PRESSURE MEDICATION(ANTIHYPERTENSIVES) [Concomitant]
  3. ASTHMA INHALER(ANTI-ASTHMATICS) [Concomitant]

REACTIONS (4)
  - PRURITUS [None]
  - RASH GENERALISED [None]
  - SKIN WARM [None]
  - URTICARIA [None]
